FAERS Safety Report 7430941-2 (Version None)
Quarter: 2011Q2

REPORT INFORMATION
  Report Type: 
  Country: None (occurrence: None)
  Receive Date: 20110421
  Receipt Date: 20110414
  Transmission Date: 20111010
  Serious: Yes (Other)
  Sender: FDA-Public Use
  Company Number: PHHY2011CN31872

PATIENT
  Sex: Female

DRUGS (1)
  1. MIACALCIN [Suspect]
     Indication: OSTEOPOROSIS
     Dosage: 50 IU, UNK
     Dates: start: 20110329, end: 20110331

REACTIONS (1)
  - DIARRHOEA [None]
